FAERS Safety Report 21662014 (Version 1)
Quarter: 2022Q4

REPORT INFORMATION
  Report Type: Spontaneous
  Country: RU (occurrence: RU)
  Receive Date: 20221130
  Receipt Date: 20221130
  Transmission Date: 20230113
  Serious: Yes (Other)
  Sender: FDA-Public Use
  Company Number: RU-AMGEN-RUSSP2022205015

PATIENT

DRUGS (1)
  1. XGEVA [Suspect]
     Active Substance: DENOSUMAB
     Indication: Bone giant cell tumour
     Dosage: 120 MILLIGRAM (ON THE DAYS 1, 8, 15 AND 28 OF THE 1ST MONTH, THEN ONCE IN 28 DAYS)
     Route: 058

REACTIONS (4)
  - Giant cell tumour of tendon sheath [Unknown]
  - Post procedural complication [Unknown]
  - Complication associated with device [Unknown]
  - Off label use [Unknown]
